FAERS Safety Report 10930596 (Version 1)
Quarter: 2015Q1

REPORT INFORMATION
  Report Type: Spontaneous
  Country: JP (occurrence: JP)
  Receive Date: 20150319
  Receipt Date: 20150319
  Transmission Date: 20150721
  Serious: Yes (Other)
  Sender: FDA-Public Use
  Company Number: JP-TEVA-541195ISR

PATIENT

DRUGS (2)
  1. CISPLATIN. [Suspect]
     Active Substance: CISPLATIN
     Indication: HEAD AND NECK CANCER
     Dosage: 200 MG/M2 ON DAYS 1 AND 35
     Route: 013
  2. FLUOROURACIL. [Suspect]
     Active Substance: FLUOROURACIL
     Indication: HEAD AND NECK CANCER
     Dosage: 800 MG/M2 ON DAYS 1-5 AND DAY 36-39
     Route: 041

REACTIONS (2)
  - Haematotoxicity [Unknown]
  - Mucosal inflammation [Unknown]
